FAERS Safety Report 14914077 (Version 1)
Quarter: 2018Q2

REPORT INFORMATION
  Report Type: Spontaneous
  Country: US (occurrence: US)
  Receive Date: 20180501
  Receipt Date: 20180501
  Transmission Date: 20180711
  Serious: Yes (Hospitalization)
  Sender: FDA-Public Use
  Company Number: None

PATIENT
  Age: 26 Year
  Sex: Male
  Weight: 85.28 kg

DRUGS (2)
  1. HALOPERIDOL. [Suspect]
     Active Substance: HALOPERIDOL
     Indication: DYSPNOEA
     Route: 048
     Dates: start: 20180205, end: 20180206
  2. HALOPERIDOL. [Suspect]
     Active Substance: HALOPERIDOL
     Indication: SWOLLEN TONGUE
     Route: 048
     Dates: start: 20180205, end: 20180206

REACTIONS (6)
  - Dystonia [None]
  - Refusal of treatment by patient [None]
  - Dysphagia [None]
  - Muscle contracture [None]
  - Swollen tongue [None]
  - Dyspnoea [None]

NARRATIVE: CASE EVENT DATE: 20180207
